FAERS Safety Report 25410341 (Version 1)
Quarter: 2025Q2

REPORT INFORMATION
  Report Type: Spontaneous
  Country: US (occurrence: US)
  Receive Date: 20250608
  Receipt Date: 20250608
  Transmission Date: 20250716
  Serious: No
  Sender: SANOFI AVENTIS
  Company Number: US-SA-2025SA160043

PATIENT
  Sex: Female
  Weight: 65 kg

DRUGS (3)
  1. DUPIXENT [Suspect]
     Active Substance: DUPILUMAB
     Indication: Dermatitis atopic
     Dosage: 300 MG, QOW
     Route: 058
     Dates: end: 202410
  2. DUPIXENT [Suspect]
     Active Substance: DUPILUMAB
  3. IRON [Concomitant]
     Active Substance: IRON

REACTIONS (1)
  - Swelling [Unknown]
